FAERS Safety Report 16218004 (Version 3)
Quarter: 2020Q4

REPORT INFORMATION
  Report Type: Spontaneous
  Country: US (occurrence: US)
  Receive Date: 20190419
  Receipt Date: 20201231
  Transmission Date: 20210113
  Serious: Yes (Hospitalization, Other)
  Sender: FDA-Public Use
  Company Number: US-JNJFOC-20190422782

PATIENT
  Age: 71 Year
  Sex: Female

DRUGS (3)
  1. ASPIRIN                            /00002701/ [Concomitant]
     Active Substance: ASPIRIN
  2. XARELTO [Suspect]
     Active Substance: RIVAROXABAN
     Indication: DEEP VEIN THROMBOSIS
     Route: 048
     Dates: start: 2013
  3. XARELTO [Suspect]
     Active Substance: RIVAROXABAN
     Route: 048
     Dates: start: 201809, end: 201902

REACTIONS (3)
  - Haemorrhage [Unknown]
  - Ischaemic stroke [Unknown]
  - Myocardial ischaemia [Recovering/Resolving]

NARRATIVE: CASE EVENT DATE: 20170908
